FAERS Safety Report 13692093 (Version 1)
Quarter: 2017Q2

REPORT INFORMATION
  Report Type: Spontaneous
  Country: US (occurrence: US)
  Receive Date: 20170627
  Receipt Date: 20170627
  Transmission Date: 20170830
  Serious: Yes (Other)
  Sender: FDA-Public Use
  Company Number: US-009507513-1706USA009048

PATIENT
  Age: 46 Year
  Sex: Female
  Weight: 7.14 kg

DRUGS (7)
  1. ZOLPIDEM [Concomitant]
     Active Substance: ZOLPIDEM\ZOLPIDEM TARTRATE
     Dosage: 12.5 MG BY MOUTH DAILY AT BEDTIME AS NEEDED
     Route: 048
  2. FLUTICASONE PROPIONATE (+) SALMETEROL XINAFOATE [Concomitant]
     Active Substance: FLUTICASONE PROPIONATE\SALMETEROL XINAFOATE
     Dosage: 1 PUFF EVERY 12 HOURS, STRENGH 250-50 MCG/ DOSE,DISKUS INHALER
     Route: 055
  3. XARELTO [Concomitant]
     Active Substance: RIVAROXABAN
     Dosage: 1 TABLET BY MOUTH DAILY WITH DINNER
     Route: 048
  4. KEYTRUDA [Suspect]
     Active Substance: PEMBROLIZUMAB
     Indication: COLITIS
     Dosage: 200 MG, Q3W
     Route: 042
     Dates: start: 20161221, end: 20170412
  5. ATIVAN [Concomitant]
     Active Substance: LORAZEPAM
     Indication: ANXIETY
     Dosage: 1 TABLET BY MOUTH EVERY 6 HOURS AS NEEDED
     Route: 048
  6. VERAPAMIL [Concomitant]
     Active Substance: VERAPAMIL HYDROCHLORIDE
     Dosage: 24 HOUR CAPSULE, 240MG BY MOUTH DAILY
     Route: 048
  7. LOPRESSOR [Concomitant]
     Active Substance: METOPROLOL TARTRATE
     Dosage: 100 MG, BY MOUTH 2 TIMES A DAY
     Route: 048

REACTIONS (2)
  - Diarrhoea [Recovered/Resolved]
  - Product use in unapproved indication [Unknown]

NARRATIVE: CASE EVENT DATE: 20161221
